FAERS Safety Report 23847926 (Version 1)
Quarter: 2024Q2

REPORT INFORMATION
  Report Type: Spontaneous
  Country: US (occurrence: None)
  Receive Date: 20240510
  Receipt Date: 20240510
  Transmission Date: 20240716
  Serious: Yes (Death)
  Sender: FDA-Public Use
  Company Number: None

PATIENT
  Age: 47 Year
  Sex: Female

DRUGS (11)
  1. CREON [Suspect]
     Active Substance: PANCRELIPASE AMYLASE\PANCRELIPASE LIPASE\PANCRELIPASE PROTEASE
     Indication: Pancreatic disorder
     Dosage: 24,000 INTERNATIONAL UNIT (S) - IU  TID ORAL
     Route: 048
     Dates: start: 20230418, end: 20240228
  2. LEVOTHYROXINE [Concomitant]
  3. HYDROXYCHLOROQUINE [Concomitant]
     Active Substance: HYDROXYCHLOROQUINE
  4. GABAPENTIN [Concomitant]
  5. prenisone [Concomitant]
  6. MIDODRINE [Concomitant]
     Active Substance: MIDODRINE
  7. SOLIFENACIN [Concomitant]
  8. PANTOPRAZOLE [Concomitant]
  9. METHYLPREDNISOLONE [Concomitant]
     Active Substance: METHYLPREDNISOLONE
  10. ALLOPURINOL [Concomitant]
     Active Substance: ALLOPURINOL
  11. ACETAMINOPHEN\HYDROCODONE [Concomitant]
     Active Substance: ACETAMINOPHEN\HYDROCODONE

REACTIONS (1)
  - Bacterial infection [None]

NARRATIVE: CASE EVENT DATE: 20240228
